FAERS Safety Report 8781563 (Version 3)
Quarter: 2013Q1

REPORT INFORMATION
  Report Type: Spontaneous
  Country: US (occurrence: FR)
  Receive Date: 20120913
  Receipt Date: 20130321
  Transmission Date: 20140127
  Serious: Yes (Death, Hospitalization)
  Sender: FDA-Public Use
  Company Number: US-009507513-1209USA003383

PATIENT
  Age: 42 Year
  Sex: Male

DRUGS (11)
  1. ISENTRESS [Suspect]
     Dosage: 400 MG, 2X/DAY
     Route: 048
     Dates: start: 20120210
  2. ANSATIPINE [Suspect]
     Dosage: 150 MG, UNK
     Route: 048
  3. BACTRIM [Suspect]
     Dosage: 1 AMPULE, 1X/DAY
     Route: 042
     Dates: end: 20120215
  4. ETRAVIRINE [Suspect]
     Dosage: UNKNOWN
     Route: 048
     Dates: start: 20120210
  5. ETHAMBUTOL HYDROCHLORIDE [Suspect]
     Dosage: 1200 MG UNK
     Route: 042
  6. VALGANCICLOVIR HYDROCHLORIDE [Suspect]
     Dosage: 500 MG, EVERY 3 DAYS
     Route: 042
     Dates: end: 20120215
  7. AZITHROMYCIN [Suspect]
     Dosage: 500 MG, 1X/DAY
     Route: 048
  8. EPIVIR [Suspect]
     Dosage: 15 ML, 2X/DAY
     Route: 048
     Dates: start: 20120210
  9. RETROVIR [Suspect]
     Dosage: 300 MG, 2X/DAY
     Route: 042
     Dates: start: 20120210, end: 20120214
  10. FUZEON [Suspect]
     Dosage: UNK
     Route: 058
     Dates: start: 20120210
  11. MEDROL [Concomitant]
     Dosage: UNK
     Dates: start: 20120210

REACTIONS (3)
  - Leukopenia [Fatal]
  - Pancytopenia [Fatal]
  - Neutropenia [Fatal]
